FAERS Safety Report 7945426-4 (Version None)
Quarter: 2011Q4

REPORT INFORMATION
  Report Type: 
  Country: None (occurrence: None)
  Receive Date: 20111129
  Receipt Date: 20111122
  Transmission Date: 20120403
  Serious: Yes (Hospitalization)
  Sender: FDA-Public Use
  Company Number: FR-UCBSA-046365

PATIENT
  Age: 21 Year
  Sex: Female

DRUGS (3)
  1. VIMPAT [Suspect]
     Indication: EPILEPSY
     Route: 048
     Dates: start: 20110601
  2. AMITRIPTYLINE HCL [Suspect]
     Indication: EPILEPSY
     Dosage: 6 TO 10 DROPS
     Route: 048
     Dates: start: 20101017
  3. LAMICTAL [Suspect]
     Indication: EPILEPSY
     Route: 048
     Dates: start: 20110301

REACTIONS (1)
  - GOUT [None]
